FAERS Safety Report 23007095 (Version 2)
Quarter: 2024Q3

REPORT INFORMATION
  Report Type: Spontaneous
  Country: US (occurrence: US)
  Receive Date: 20230929
  Receipt Date: 20240911
  Transmission Date: 20241016
  Serious: No
  Sender: ALVOGEN
  Company Number: US-ALVOGEN-2023091541

PATIENT
  Sex: Female

DRUGS (1)
  1. GRALISE [Suspect]
     Active Substance: GABAPENTIN
     Indication: Sciatica
     Dosage: EXPIRATION DATE: UU-JUL-2024?90 COUNTS

REACTIONS (6)
  - Hypoaesthesia [Unknown]
  - Neuralgia [Unknown]
  - Off label use [Unknown]
  - Product packaging quantity issue [Unknown]
  - Product use issue [Unknown]
  - Product dose omission issue [Unknown]
